FAERS Safety Report 4581702-3 (Version None)
Quarter: 2005Q1

REPORT INFORMATION
  Report Type: 
  Country: None (occurrence: None)
  Receive Date: 20050214
  Receipt Date: 20041221
  Transmission Date: 20050727
  Serious: No
  Sender: FDA-Public Use
  Company Number: US-GLAXOSMITHKLINE-A0538222A

PATIENT
  Age: 63 Year
  Sex: Male

DRUGS (4)
  1. LAMICTAL [Suspect]
     Indication: BIPOLAR DISORDER
     Dosage: 2.5MG PER DAY
     Route: 048
     Dates: start: 20041211, end: 20041220
  2. COZAAR [Concomitant]
  3. ATIVAN [Concomitant]
  4. AMBIEN [Concomitant]

REACTIONS (2)
  - DYSARTHRIA [None]
  - TINNITUS [None]
